FAERS Safety Report 14148136 (Version 2)
Quarter: 2018Q1

REPORT INFORMATION
  Report Type: Spontaneous
  Country: FR (occurrence: FR)
  Receive Date: 20171101
  Receipt Date: 20180306
  Transmission Date: 20180508
  Serious: Yes (Hospitalization)
  Sender: FDA-Public Use
  Company Number: FR-MERCK KGAA-2032931

PATIENT
  Age: 66 Year
  Sex: Female
  Weight: 48 kg

DRUGS (4)
  1. NOVOTHYROX [Suspect]
     Active Substance: LEVOTHYROXINE SODIUM
     Indication: AUTOIMMUNE THYROIDITIS
     Route: 048
     Dates: start: 20170501, end: 20170831
  2. CARDENSIEL [Concomitant]
     Active Substance: BISOPROLOL FUMARATE
  3. COVERSYL [Concomitant]
     Active Substance: PERINDOPRIL
  4. LASILIX [Concomitant]
     Active Substance: FUROSEMIDE

REACTIONS (20)
  - Diffuse alopecia [Unknown]
  - Myalgia [Unknown]
  - Irritability [Unknown]
  - Weight decreased [Unknown]
  - Abdominal pain [Unknown]
  - Blood pressure fluctuation [Unknown]
  - Muscle fatigue [Unknown]
  - Arrhythmia [Unknown]
  - Eye pain [Unknown]
  - Parotitis [Unknown]
  - Vertigo [Unknown]
  - Fatigue [Unknown]
  - Blood thyroid stimulating hormone normal [Recovered/Resolved]
  - Dysgeusia [Unknown]
  - Dry eye [Unknown]
  - Eye irritation [Unknown]
  - Salivary gland enlargement [Not Recovered/Not Resolved]
  - Headache [Unknown]
  - Insomnia [Unknown]
  - Tinnitus [Unknown]

NARRATIVE: CASE EVENT DATE: 20170508
